FAERS Safety Report 5084201-8 (Version None)
Quarter: 2006Q3

REPORT INFORMATION
  Report Type: 
  Country: None (occurrence: None)
  Receive Date: 20060821
  Receipt Date: 20050927
  Transmission Date: 20061208
  Serious: Yes (Other)
  Sender: FDA-Public Use
  Company Number: US-BRISTOL-MYERS SQUIBB COMPANY-13124177

PATIENT
  Age: 52 Year
  Sex: Male
  Weight: 84 kg

DRUGS (9)
  1. TEQUIN [Suspect]
     Indication: POSTOPERATIVE CARE
     Dosage: ADDITIONAL INFORMATION ON PACKAGE: FF-117718-01-PS-03
     Dates: start: 20050101, end: 20050101
  2. PROZAC [Concomitant]
  3. HYDROCHLOROTHIAZIDE [Concomitant]
  4. LIPITOR [Concomitant]
  5. LECITHIN [Concomitant]
  6. GLUCOSAMINE SULFATE + MSM [Concomitant]
  7. VITAMIN E [Concomitant]
  8. MULTI-VITAMIN [Concomitant]
  9. CALCIUM + MAGNESIUM [Concomitant]

REACTIONS (1)
  - RASH [None]
